FAERS Safety Report 16651343 (Version 1)
Quarter: 2019Q3

REPORT INFORMATION
  Report Type: Spontaneous
  Country: US (occurrence: US)
  Receive Date: 20190617
  Receipt Date: 20190617
  Transmission Date: 20191004
  Serious: No
  Sender: FDA-Public Use
  Company Number: None

PATIENT
  Sex: Female
  Weight: 77.11 kg

DRUGS (6)
  1. NAPROXEN. [Concomitant]
     Active Substance: NAPROXEN
  2. TYLENOL [Concomitant]
     Active Substance: ACETAMINOPHEN
  3. MOTRIN [Concomitant]
     Active Substance: IBUPROFEN
  4. MOBIC [Suspect]
     Active Substance: MELOXICAM
  5. IBUPROFEN. [Concomitant]
     Active Substance: IBUPROFEN
  6. CELEBREX [Suspect]
     Active Substance: CELECOXIB
     Route: 048

REACTIONS (1)
  - Drug ineffective [None]
